FAERS Safety Report 6298194-9 (Version None)
Quarter: 2009Q3

REPORT INFORMATION
  Report Type: 
  Country: None (occurrence: None)
  Receive Date: 20090805
  Receipt Date: 20090731
  Transmission Date: 20100115
  Serious: Yes (Other)
  Sender: FDA-Public Use
  Company Number: CA-ROXANE LABORATORIES, INC.-2009-RO-00760RO

PATIENT
  Age: 80 Year
  Sex: Female

DRUGS (6)
  1. HYDROMORPHONE HCL [Suspect]
     Indication: PAIN
  2. ACETAMINOPHEN [Suspect]
     Indication: PAIN
     Dosage: 2925 MG
  3. GABAPENTIN [Suspect]
     Indication: PAIN
     Dosage: 300 MG
  4. METHADONE [Concomitant]
     Indication: PAIN
  5. METHADONE [Concomitant]
     Dosage: 5 MG
  6. INSULIN [Concomitant]
     Indication: TYPE 2 DIABETES MELLITUS

REACTIONS (4)
  - AGGRESSION [None]
  - AGITATION [None]
  - PAIN [None]
  - SOMNOLENCE [None]
